FAERS Safety Report 8155728-7 (Version None)
Quarter: 2012Q1

REPORT INFORMATION
  Report Type: 
  Country: None (occurrence: None)
  Receive Date: 20120215
  Receipt Date: 20120207
  Transmission Date: 20120608
  Serious: Yes (Death, Other)
  Sender: FDA-Public Use
  Company Number: AUR-APL-2012-00600

PATIENT
  Age: 51 Year
  Sex: Male

DRUGS (2)
  1. MIRTAZAPINE [Suspect]
     Indication: DEPRESSION
     Dates: start: 20100101
  2. VENLAFAXINE HCL [Suspect]
     Indication: DEPRESSION
     Dosage: (75 MG)
     Dates: start: 20100827, end: 20100929

REACTIONS (6)
  - COMPLETED SUICIDE [None]
  - ANXIETY [None]
  - DRUG INEFFECTIVE [None]
  - DISEASE RECURRENCE [None]
  - DEPRESSION [None]
  - CONDITION AGGRAVATED [None]
